FAERS Safety Report 7683084-7 (Version None)
Quarter: 2011Q3

REPORT INFORMATION
  Report Type: 
  Country: None (occurrence: None)
  Receive Date: 20110815
  Receipt Date: 20110802
  Transmission Date: 20111222
  Serious: Yes (Hospitalization, Other)
  Sender: FDA-Public Use
  Company Number: US-ELI_LILLY_AND_COMPANY-US201108001593

PATIENT
  Sex: Female

DRUGS (7)
  1. ADDERALL 5 [Concomitant]
     Dosage: 10 MG, OTHER
  2. PERCOCET [Concomitant]
  3. CYMBALTA [Suspect]
     Dosage: 90 MG, QD
  4. CYMBALTA [Suspect]
     Dosage: 60 MG, OTHER
     Dates: end: 20110728
  5. VITAMIN B-12 [Concomitant]
     Dosage: UNK, WEEKLY (1/W)
  6. XANAX [Concomitant]
  7. CYMBALTA [Suspect]
     Indication: DEPRESSION
     Dosage: 60 MG, QD
     Dates: start: 20040101

REACTIONS (17)
  - DYSGEUSIA [None]
  - DRUG WITHDRAWAL SYNDROME [None]
  - CRYING [None]
  - MALAISE [None]
  - LOSS OF CONSCIOUSNESS [None]
  - HYSTERECTOMY [None]
  - DIZZINESS [None]
  - POLYP [None]
  - DEPRESSED MOOD [None]
  - INSOMNIA [None]
  - FEELING ABNORMAL [None]
  - NAUSEA [None]
  - ABDOMINAL DISCOMFORT [None]
  - PAIN [None]
  - INTENTIONAL DRUG MISUSE [None]
  - SUICIDAL IDEATION [None]
  - SUICIDE ATTEMPT [None]
